FAERS Safety Report 7078838-4 (Version None)
Quarter: 2010Q4

REPORT INFORMATION
  Report Type: 
  Country: None (occurrence: None)
  Receive Date: 20101102
  Receipt Date: 20081017
  Transmission Date: 20110411
  Serious: Yes (Death, Life-Threatening, Other)
  Sender: FDA-Public Use
  Company Number: FR-SANOFI-AVENTIS-D01200707892

PATIENT
  Age: 57 Year
  Sex: Female
  Weight: 50 kg

DRUGS (17)
  1. IDRAPARINUX BIOTINYLATED [Suspect]
     Indication: PULMONARY EMBOLISM
     Dosage: DOSE TEXT: 3 MG OF 1/WEEK SC SSR126517 + PLACEBO WARFARIN
     Dates: start: 20070522, end: 20071119
  2. ENOXAPARIN SODIUM [Suspect]
     Indication: PULMONARY EMBOLISM
     Dosage: UNIT DOSE: 1 MG/KG
     Route: 058
     Dates: start: 20070522, end: 20070528
  3. SSR29261 [Suspect]
     Indication: PULMONARY EMBOLISM
     Dosage: UNIT DOSE: 100 MG
     Route: 042
     Dates: start: 20071123, end: 20071123
  4. BRONCHODUAL [Concomitant]
     Indication: EMPHYSEMA
     Dosage: DOSE TEXT: PRN
     Route: 065
     Dates: start: 20070620
  5. VENTOLIN [Concomitant]
     Indication: EMPHYSEMA
     Dosage: DOSE TEXT: PRN
     Route: 065
     Dates: start: 20070701
  6. PAPAVER SOMNIFERUM TINCTURE AND PARACETAMOL AND ATROPA BELLADONNA EXTR [Concomitant]
     Indication: PAIN
     Route: 065
     Dates: start: 20070901
  7. AMLODIPINE [Concomitant]
     Indication: HYPERTENSION
     Route: 065
     Dates: start: 19970101
  8. ALDACTONE [Concomitant]
     Indication: HYPERTENSION
     Route: 065
     Dates: start: 19970101
  9. RIVOTRIL [Concomitant]
     Indication: PAIN
     Route: 065
     Dates: start: 20020101
  10. AMITRIPTYLINE HCL [Concomitant]
     Indication: PAIN
     Route: 065
     Dates: start: 20060101
  11. NEURONTIN [Concomitant]
     Indication: PAIN
     Route: 065
     Dates: start: 20020101
  12. CALCIUM CARBONATE/CITRIC ACID [Concomitant]
     Indication: OSTEOPOROSIS
     Route: 065
     Dates: start: 20020101
  13. CARBASALATE CALCIUM AND PARACETAMOL AND CHLORPHENAMINE MALEATE AND CAF [Concomitant]
     Indication: PAIN
     Dosage: DOSE TEXT: PRN
     Route: 065
     Dates: start: 20030101
  14. DEPAKENE [Concomitant]
     Route: 065
     Dates: start: 20020101
  15. CRESTOR [Concomitant]
     Route: 065
     Dates: start: 20070401
  16. LEVOTHYROXINE SODIUM [Concomitant]
     Indication: HYPOTHYROIDISM
     Route: 065
  17. NICORETTE ^HOECHST MARION ROUSSEL^ [Concomitant]
     Indication: SMOKING CESSATION THERAPY
     Route: 065
     Dates: start: 20070528

REACTIONS (6)
  - CARDIAC ARREST [None]
  - COMA [None]
  - FALL [None]
  - HAEMATOMA [None]
  - INTRAVENTRICULAR HAEMORRHAGE [None]
  - RUPTURED CEREBRAL ANEURYSM [None]
